FAERS Safety Report 10165772 (Version 1)
Quarter: 2014Q2

REPORT INFORMATION
  Report Type: Spontaneous
  Country: US (occurrence: US)
  Receive Date: 20140510
  Receipt Date: 20140510
  Transmission Date: 20141212
  Serious: No
  Sender: FDA-Public Use
  Company Number: US-BRISTOL-MYERS SQUIBB COMPANY-19930049

PATIENT
  Age: 58 Year
  Sex: Male
  Weight: 105.67 kg

DRUGS (5)
  1. BYDUREON [Suspect]
     Indication: TYPE 2 DIABETES MELLITUS
     Dates: start: 20131122, end: 20131129
  2. GLUCOTROL [Concomitant]
     Route: 048
  3. METFORMIN [Concomitant]
     Route: 048
  4. LISINOPRIL + HCTZ [Concomitant]
     Dosage: 20/12.5MG PO
     Route: 048
  5. BYSTOLIC [Concomitant]
     Route: 048

REACTIONS (1)
  - Injection site haemorrhage [Recovered/Resolved]
